FAERS Safety Report 7610513-7 (Version None)
Quarter: 2011Q3

REPORT INFORMATION
  Report Type: 
  Country: None (occurrence: None)
  Receive Date: 20110715
  Receipt Date: 20091108
  Transmission Date: 20111222
  Serious: Yes (Other)
  Sender: FDA-Public Use
  Company Number: US-BAYER-200938741NA

PATIENT
  Age: 54 Year
  Sex: Male
  Weight: 103 kg

DRUGS (23)
  1. TRASYLOL [Suspect]
     Dosage: 200ML OVER 30 MINUTES
     Route: 042
     Dates: start: 20040526, end: 20040526
  2. NITROGLYCERIN [Concomitant]
     Dosage: PRN, UNK
     Route: 048
     Dates: start: 20040101
  3. METOPROLOL TARTRATE [Concomitant]
     Dosage: 50 MG, BID
     Route: 048
     Dates: start: 20040101
  4. LISINOPRIL [Concomitant]
     Dosage: UNK
     Dates: start: 20040101
  5. LIPITOR [Concomitant]
     Dosage: 40 MG, HS
     Route: 048
     Dates: start: 20040101
  6. PLAVIX [Concomitant]
     Dosage: 75 MG, QD
     Route: 048
     Dates: start: 20040101
  7. RANEXA [Concomitant]
     Dosage: UNK
     Route: 048
     Dates: start: 20040101
  8. ETOMIDATE [Concomitant]
     Dosage: UNK
     Route: 042
     Dates: start: 20040526
  9. PANCURONIUM [Concomitant]
     Dosage: UNK
     Route: 042
     Dates: start: 20040526
  10. NORMOSOL [Concomitant]
     Dosage: UNK
     Route: 042
     Dates: start: 20040526
  11. ISOSORBIDE DINITRATE [Concomitant]
     Dosage: UNK
     Route: 048
     Dates: start: 20040101
  12. PAPAVERINE [Concomitant]
     Dosage: 600 MG, UNK
     Route: 042
     Dates: start: 20040526
  13. TRASYLOL [Suspect]
     Dosage: 50ML/HR INFUSION
     Route: 042
     Dates: start: 20040526, end: 20040526
  14. NORVASC [Concomitant]
     Dosage: UNK
     Route: 048
     Dates: start: 20040101
  15. VERSED [Concomitant]
     Dosage: 10 MG, UNK
     Route: 042
     Dates: start: 20040526
  16. HUMULIN R [Concomitant]
     Dosage: 10 U, UNK
     Route: 042
     Dates: start: 20040526
  17. PROTAMINE SULFATE [Concomitant]
     Dosage: 150 OVER 15 MINUTES
     Route: 042
     Dates: start: 20040526
  18. TRASYLOL [Suspect]
     Indication: PRODUCT USED FOR UNKNOWN INDICATION
     Dosage: 1 ML (TEST DOSE)
     Route: 042
     Dates: start: 20040526, end: 20040526
  19. KEFZOL [Concomitant]
     Dosage: 1 G, UNK
     Route: 042
     Dates: start: 20040526
  20. FENTANYL [Concomitant]
     Dosage: 40 CC, UNK
     Route: 042
     Dates: start: 20040526
  21. PROTAMINE SULFATE [Concomitant]
     Dosage: 300 MG PUSH, UNK
     Route: 042
     Dates: start: 20040526
  22. HEPARIN [Concomitant]
     Dosage: 2000 U, UNK
     Route: 042
     Dates: start: 20040526
  23. SUFENTANIL CITRATE [Concomitant]
     Dosage: UNK
     Route: 042
     Dates: start: 20040526

REACTIONS (8)
  - UNEVALUABLE EVENT [None]
  - ANXIETY [None]
  - MYOCARDIAL INFARCTION [None]
  - FEAR [None]
  - PAIN [None]
  - HEART INJURY [None]
  - EMOTIONAL DISTRESS [None]
  - STRESS [None]
